FAERS Safety Report 24685953 (Version 5)
Quarter: 2025Q1

REPORT INFORMATION
  Report Type: Spontaneous
  Country: US (occurrence: US)
  Receive Date: 20241202
  Receipt Date: 20250130
  Transmission Date: 20250409
  Serious: No
  Sender: PFIZER
  Company Number: US-PFIZER INC-202400306756

PATIENT
  Age: 15 Year
  Sex: Female

DRUGS (1)
  1. GENOTROPIN [Suspect]
     Active Substance: SOMATROPIN
     Dosage: 2.6 MG, 1X/DAY

REACTIONS (5)
  - Device leakage [Unknown]
  - Device defective [Unknown]
  - Device issue [Unknown]
  - Device difficult to use [Unknown]
  - Device information output issue [Unknown]

NARRATIVE: CASE EVENT DATE: 20241119
